FAERS Safety Report 7990703-4 (Version None)
Quarter: 2011Q4

REPORT INFORMATION
  Report Type: 
  Country: None (occurrence: None)
  Receive Date: 20111219
  Receipt Date: 20111219
  Transmission Date: 20120403
  Serious: Yes (Death)
  Sender: FDA-Public Use
  Company Number: None

PATIENT
  Age: 79 Year
  Sex: Female
  Weight: 559.1 kg

DRUGS (2)
  1. LEVAQUIN [Concomitant]
     Indication: PNEUMONIA
     Dosage: 500MG
     Route: 048
     Dates: start: 20111207, end: 20111214
  2. WARFARIN SODIUM [Suspect]
     Indication: ANTICOAGULANT THERAPY
     Dosage: 2.5MG
     Route: 048
     Dates: start: 20100101, end: 20111214

REACTIONS (12)
  - ASTHMA [None]
  - HYPOTENSION [None]
  - PNEUMONIA [None]
  - INTERNATIONAL NORMALISED RATIO INCREASED [None]
  - BRAIN HERNIATION [None]
  - UNRESPONSIVE TO STIMULI [None]
  - CARDIAC FAILURE CONGESTIVE [None]
  - BRADYCARDIA [None]
  - CARDIAC ARREST [None]
  - ATRIAL FIBRILLATION [None]
  - DEHYDRATION [None]
  - CEREBRAL HAEMORRHAGE [None]
